FAERS Safety Report 13024342 (Version 1)
Quarter: 2016Q4

REPORT INFORMATION
  Report Type: Spontaneous
  Country: NL (occurrence: NL)
  Receive Date: 20161213
  Receipt Date: 20161213
  Transmission Date: 20170207
  Serious: Yes (Life-Threatening, Other)
  Sender: FDA-Public Use
  Company Number: NL-BAYER-2016-228973

PATIENT
  Age: 33 Year
  Sex: Female

DRUGS (3)
  1. HEPARIN [Suspect]
     Active Substance: HEPARIN SODIUM
     Dosage: UNK
  2. ACETYLSALICYLIC ACID (} 100 MG) [Suspect]
     Active Substance: ASPIRIN
  3. IMMUNGLOBULIN [IMMUNOGLOBULIN] [Concomitant]
     Active Substance: HUMAN IMMUNOGLOBULIN G
     Route: 042

REACTIONS (9)
  - Cardiac failure [None]
  - Infective thrombosis [None]
  - Staphylococcal sepsis [None]
  - Drug ineffective [None]
  - Premature delivery [None]
  - Haemolysis [None]
  - Device related thrombosis [None]
  - Splenomegaly [None]
  - Maternal exposure during pregnancy [None]
